FAERS Safety Report 19693354 (Version 3)
Quarter: 2021Q4

REPORT INFORMATION
  Report Type: Spontaneous
  Country: US (occurrence: US)
  Receive Date: 20210812
  Receipt Date: 20211229
  Transmission Date: 20220303
  Serious: No
  Sender: FDA-Public Use
  Company Number: US-SA-SAC20210809000543

PATIENT
  Age: 49 Year
  Sex: Female

DRUGS (1)
  1. DUPIXENT [Suspect]
     Active Substance: DUPILUMAB
     Indication: Sinus polyp
     Dosage: 300 MG, FREQUENCY: OTHER
     Route: 058
     Dates: start: 20210625

REACTIONS (7)
  - Injection site reaction [Unknown]
  - Dry eye [Unknown]
  - Injection site erythema [Unknown]
  - Injection site irritation [Unknown]
  - Nasal polypectomy [Unknown]
  - Product dose omission in error [Unknown]
  - Product use in unapproved indication [Unknown]

NARRATIVE: CASE EVENT DATE: 20210625
